FAERS Safety Report 19299880 (Version 1)
Quarter: 2021Q2

REPORT INFORMATION
  Report Type: Spontaneous
  Country: US (occurrence: US)
  Receive Date: 20210524
  Receipt Date: 20210524
  Transmission Date: 20210717
  Serious: Yes (Life-Threatening, Hospitalization, Disabling, Other)
  Sender: FDA-Public Use
  Company Number: None

PATIENT
  Age: 29 Year
  Sex: Male
  Weight: 83.25 kg

DRUGS (4)
  1. VITAMIN D3 [Concomitant]
     Active Substance: CHOLECALCIFEROL
  2. MEN^S DAILY MULTIVITAMIN [Concomitant]
  3. SULFAMETHOXAZOLE?TMP DS [Suspect]
     Active Substance: SULFAMETHOXAZOLE\TRIMETHOPRIM
     Indication: EPIDIDYMITIS
     Dosage: ?          QUANTITY:60 TABLET(S);?
     Route: 048
  4. OMEGA 3 [Concomitant]
     Active Substance: OMEGA-3 FATTY ACIDS

REACTIONS (8)
  - Pneumothorax [None]
  - Pyrexia [None]
  - Pneumomediastinum [None]
  - Rash [None]
  - Pulmonary toxicity [None]
  - Lung infiltration [None]
  - Acute respiratory distress syndrome [None]
  - Respiratory failure [None]

NARRATIVE: CASE EVENT DATE: 20210320
